FAERS Safety Report 4999963-5 (Version None)
Quarter: 2006Q2

REPORT INFORMATION
  Report Type: 
  Country: None (occurrence: None)
  Receive Date: 20060510
  Receipt Date: 20060421
  Transmission Date: 20061013
  Serious: Yes (Hospitalization)
  Sender: FDA-Public Use
  Company Number: GXKR2006ES02284

PATIENT
  Age: 80 Year
  Sex: Male

DRUGS (2)
  1. CEFUROXIME [Suspect]
     Indication: RESPIRATORY TRACT INFECTION
     Dosage: 250 MG, BID, ORAL
     Route: 048
  2. CEPHALOSPORINES                   (NO INGREDIENTS/SUBSTANCES) [Suspect]
     Dosage: PATCH TEST, CUTANEOUS
     Route: 003

REACTIONS (7)
  - DERMATITIS EXFOLIATIVE [None]
  - EOSINOPHILIA [None]
  - ERYTHEMA [None]
  - LEUKOCYTOSIS [None]
  - PRURITUS GENERALISED [None]
  - SKIN TEST POSITIVE [None]
  - TYPE IV HYPERSENSITIVITY REACTION [None]
